FAERS Safety Report 7799980-6 (Version None)
Quarter: 2011Q4

REPORT INFORMATION
  Report Type: 
  Country: None (occurrence: None)
  Receive Date: 20111006
  Receipt Date: 20110926
  Transmission Date: 20120403
  Serious: Yes (Hospitalization, Other)
  Sender: FDA-Public Use
  Company Number: GB-ROCHE-798906

PATIENT
  Sex: Female
  Weight: 72 kg

DRUGS (2)
  1. COPEGUS [Suspect]
     Indication: HEPATITIS C
     Dosage: DOSE: 400 MG MORNING AND 600 MG EVENING.
     Route: 048
     Dates: start: 20110704, end: 20110823
  2. PEGINTERFERON ALFA-2A [Suspect]
     Indication: HEPATITIS C
     Dosage: FORM: SUBCUTANEOUS INJECTION
     Route: 058
     Dates: start: 20110704, end: 20110823

REACTIONS (3)
  - SYNCOPE [None]
  - DEPRESSION [None]
  - MAJOR DEPRESSION [None]
